FAERS Safety Report 20822312 (Version 1)
Quarter: 2022Q2

REPORT INFORMATION
  Report Type: Spontaneous
  Country: US (occurrence: US)
  Receive Date: 20220512
  Receipt Date: 20220512
  Transmission Date: 20220721
  Serious: Yes (Hospitalization)
  Sender: FDA-Public Use
  Company Number: US-LUNDBECK-DKLU3047589

PATIENT
  Weight: 54 kg

DRUGS (4)
  1. ESCITALOPRAM OXALATE [Suspect]
     Active Substance: ESCITALOPRAM OXALATE
     Indication: Depression
     Dosage: OVERDOSE: 60 MG
     Route: 065
  2. ESCITALOPRAM OXALATE [Suspect]
     Active Substance: ESCITALOPRAM OXALATE
     Indication: Anxiety
     Dosage: 20 MG, QD
  3. GUANFACINE [Suspect]
     Active Substance: GUANFACINE
     Indication: Anxiety
     Dosage: 8 MG
     Route: 065
  4. GUANFACINE [Suspect]
     Active Substance: GUANFACINE
     Indication: Anxiety
     Dosage: 2 MG, QD
     Route: 065

REACTIONS (6)
  - Intentional overdose [Unknown]
  - Somnolence [Recovering/Resolving]
  - Dizziness [Recovering/Resolving]
  - Bradycardia [Recovering/Resolving]
  - Hypotension [Recovering/Resolving]
  - Product administered to patient of inappropriate age [Unknown]
